FAERS Safety Report 24291996 (Version 1)
Quarter: 2024Q3

REPORT INFORMATION
  Report Type: Spontaneous
  Country: CA (occurrence: CA)
  Receive Date: 20240906
  Receipt Date: 20240906
  Transmission Date: 20241017
  Serious: Yes (Other)
  Sender: PFIZER
  Company Number: CA-PFIZER INC-202400250047

PATIENT
  Age: 60 Year
  Sex: Male

DRUGS (1)
  1. BEVACIZUMAB [Suspect]
     Active Substance: BEVACIZUMAB
     Indication: Neovascular age-related macular degeneration
     Route: 065

REACTIONS (5)
  - Angiopathy [Unknown]
  - Eye disorder [Unknown]
  - Intentional product use issue [Unknown]
  - Off label use [Unknown]
  - Visual impairment [Unknown]
